FAERS Safety Report 6180189-7 (Version None)
Quarter: 2009Q2

REPORT INFORMATION
  Report Type: 
  Country: None (occurrence: None)
  Receive Date: 20090501
  Receipt Date: 20090422
  Transmission Date: 20091009
  Serious: Yes (Other)
  Sender: FDA-Public Use
  Company Number: 193213ISR

PATIENT
  Age: 51 Year
  Sex: Female

DRUGS (1)
  1. WARFARIN SODIUM [Suspect]

REACTIONS (1)
  - CONSTIPATION [None]
